FAERS Safety Report 7084609-5 (Version None)
Quarter: 2010Q4

REPORT INFORMATION
  Report Type: 
  Country: None (occurrence: None)
  Receive Date: 20101104
  Receipt Date: 20101022
  Transmission Date: 20110411
  Serious: Yes (Other)
  Sender: FDA-Public Use
  Company Number: PHHY2010US72190

PATIENT
  Sex: Female

DRUGS (1)
  1. GLEEVEC [Suspect]
     Indication: GASTRIC CANCER
     Dosage: 200 MG, QD
     Route: 048
     Dates: start: 20100624

REACTIONS (3)
  - DIARRHOEA [None]
  - LIMB OPERATION [None]
  - VOMITING [None]
